FAERS Safety Report 22660700 (Version 1)
Quarter: 2023Q2

REPORT INFORMATION
  Report Type: Report from Study
  Country: US (occurrence: US)
  Receive Date: 20230630
  Receipt Date: 20230630
  Transmission Date: 20230722
  Serious: Yes (Other)
  Sender: FDA-Public Use
  Company Number: US-JAZZ-2022-US-022341

PATIENT
  Sex: Male

DRUGS (7)
  1. EPIDIOLEX [Suspect]
     Active Substance: CANNABIDIOL
     Indication: Product used for unknown indication
     Dosage: UNK
     Dates: start: 20200916, end: 20220502
  2. CARBAMAZEPINE [Concomitant]
     Active Substance: CARBAMAZEPINE
     Indication: Product used for unknown indication
     Dosage: UNK
  3. CARBAMAZEPINE [Concomitant]
     Active Substance: CARBAMAZEPINE
     Dosage: UNK
  4. OXCARBAZEPINE [Concomitant]
     Active Substance: OXCARBAZEPINE
     Indication: Product used for unknown indication
     Dosage: UNK
  5. OXCARBAZEPINE [Concomitant]
     Active Substance: OXCARBAZEPINE
     Dosage: UNK
  6. ZONISAMIDE [Concomitant]
     Active Substance: ZONISAMIDE
     Indication: Product used for unknown indication
     Dosage: UNK
  7. ZONISAMIDE [Concomitant]
     Active Substance: ZONISAMIDE
     Dosage: UNK

REACTIONS (2)
  - Drug ineffective [Unknown]
  - Abdominal discomfort [Unknown]
